FAERS Safety Report 12801368 (Version 1)
Quarter: 2016Q4

REPORT INFORMATION
  Report Type: Report from Study
  Country: US (occurrence: US)
  Receive Date: 20161003
  Receipt Date: 20161003
  Transmission Date: 20170207
  Serious: Yes (Hospitalization, Other)
  Sender: FDA-Public Use
  Company Number: US-ROCHE-1365179

PATIENT
  Age: 48 Year
  Sex: Male
  Weight: 83.5 kg

DRUGS (3)
  1. BEVACIZUMAB [Suspect]
     Active Substance: BEVACIZUMAB
     Indication: CARCINOID TUMOUR
     Dosage: OVER 30-90 MIN ON DAYS 1 AND 15 OF 28 DAYS CYCLE, LAST TREATMENT ON 02/MAY/2014
     Route: 042
     Dates: start: 20120111
  2. ALOXI [Suspect]
     Active Substance: PALONOSETRON HYDROCHLORIDE
     Indication: PRODUCT USED FOR UNKNOWN INDICATION
     Route: 065
  3. TEMSIROLIMUS [Suspect]
     Active Substance: TEMSIROLIMUS
     Indication: CARCINOID TUMOUR
     Dosage: LAST TREATMENT ON 02/MAY/2014
     Route: 042
     Dates: start: 20120111

REACTIONS (15)
  - Hyperammonaemia [Unknown]
  - Pulmonary haemorrhage [Unknown]
  - Confusional state [Unknown]
  - Abdominal pain [Recovered/Resolved]
  - Confusional state [Recovered/Resolved]
  - Cognitive disorder [Recovered/Resolved]
  - Platelet count decreased [Unknown]
  - Proteinuria [Unknown]
  - Dyspnoea [Recovered/Resolved]
  - Dehydration [Recovered/Resolved]
  - Cognitive disorder [Recovered/Resolved]
  - Hypertriglyceridaemia [Unknown]
  - Anaemia [Recovered/Resolved]
  - Fatigue [Unknown]
  - Dehydration [Unknown]

NARRATIVE: CASE EVENT DATE: 20140124
